FAERS Safety Report 8087295-0 (Version None)
Quarter: 2012Q1

REPORT INFORMATION
  Report Type: 
  Country: None (occurrence: None)
  Receive Date: 20120128
  Receipt Date: 20110516
  Transmission Date: 20120608
  Serious: No
  Sender: FDA-Public Use
  Company Number: US-ABBOTT-11P-163-0725967-00

PATIENT
  Sex: Male
  Weight: 121.67 kg

DRUGS (2)
  1. HUMIRA [Suspect]
     Indication: PSORIASIS
     Dosage: LOADING DOSE
     Route: 058
     Dates: start: 20110426, end: 20110426
  2. HUMIRA [Suspect]
     Route: 058
     Dates: start: 20110510

REACTIONS (7)
  - URINE ABNORMALITY [None]
  - FLANK PAIN [None]
  - INJECTION SITE SWELLING [None]
  - BACK PAIN [None]
  - INJECTION SITE ERYTHEMA [None]
  - CHROMATURIA [None]
  - INJECTION SITE PAIN [None]
